FAERS Safety Report 7936278-7 (Version None)
Quarter: 2011Q4

REPORT INFORMATION
  Report Type: 
  Country: None (occurrence: None)
  Receive Date: 20111123
  Receipt Date: 20111114
  Transmission Date: 20120403
  Serious: Yes (Other)
  Sender: FDA-Public Use
  Company Number: ZA-SANOFI-AVENTIS-2010SA069209

PATIENT
  Sex: Female
  Weight: 50 kg

DRUGS (5)
  1. ISONIAZID [Suspect]
     Indication: PULMONARY TUBERCULOSIS
     Route: 048
     Dates: start: 20100514, end: 20101111
  2. RIFAMPICIN [Suspect]
     Indication: PULMONARY TUBERCULOSIS
     Route: 048
     Dates: start: 20100514, end: 20101111
  3. ETHAMBUTOL HYDROCHLORIDE [Suspect]
     Indication: PULMONARY TUBERCULOSIS
     Route: 048
     Dates: start: 20100514
  4. PYRAZINAMIDE [Suspect]
     Indication: PULMONARY TUBERCULOSIS
     Route: 048
     Dates: start: 20100514
  5. MOXIFLOXACIN [Suspect]
     Indication: PULMONARY TUBERCULOSIS
     Route: 048
     Dates: start: 20100514

REACTIONS (5)
  - VAGINAL HAEMORRHAGE [None]
  - ABORTION SPONTANEOUS [None]
  - ABDOMINAL PAIN LOWER [None]
  - PREGNANCY [None]
  - MATERNAL EXPOSURE DURING PREGNANCY [None]
